FAERS Safety Report 6507357-6 (Version None)
Quarter: 2009Q4

REPORT INFORMATION
  Report Type: 
  Country: None (occurrence: None)
  Receive Date: 20091201
  Receipt Date: 20081016
  Transmission Date: 20100525
  Serious: Yes (Other)
  Sender: FDA-Public Use
  Company Number: 2008-185485-NL

PATIENT
  Age: 29 Year
  Sex: Female

DRUGS (2)
  1. NUVARING [Suspect]
     Indication: DRUG USE FOR UNKNOWN INDICATION
     Dosage: VAG
     Route: 067
  2. BACTRIM [Concomitant]

REACTIONS (2)
  - ERYTHEMA [None]
  - TOXIC SHOCK SYNDROME [None]
